FAERS Safety Report 21861712 (Version 1)
Quarter: 2023Q1

REPORT INFORMATION
  Report Type: Other
  Country: None (occurrence: US)
  Receive Date: 20230113
  Receipt Date: 20230113
  Transmission Date: 20230417
  Serious: Yes (Hospitalization)
  Sender: FDA-Public Use
  Company Number: US-Vi-Jon Inc.-2136706

PATIENT
  Sex: Male

DRUGS (1)
  1. MAGNESIUM CITRATE CHERRY [Suspect]
     Active Substance: MAGNESIUM CITRATE
     Indication: Bowel preparation
     Route: 048
     Dates: start: 20220714, end: 20220715

REACTIONS (1)
  - Cerebrovascular accident [Unknown]

NARRATIVE: CASE EVENT DATE: 20220714
